FAERS Safety Report 6515081-9 (Version None)
Quarter: 2009Q4

REPORT INFORMATION
  Report Type: 
  Country: None (occurrence: None)
  Receive Date: 20091223
  Receipt Date: 20091217
  Transmission Date: 20100525
  Serious: Yes (Hospitalization, Other)
  Sender: FDA-Public Use
  Company Number: GB-RANBAXY-2009RR-29401

PATIENT
  Age: 69 Year
  Sex: Female

DRUGS (8)
  1. SIMVASTATIN [Suspect]
     Indication: BLOOD CHOLESTEROL INCREASED
     Dosage: 20 MG, UNK
     Route: 048
     Dates: start: 20050101
  2. CLOZARIL [Suspect]
     Indication: SCHIZOPHRENIA
     Dosage: 400 MG, UNK
     Route: 048
     Dates: start: 19990120
  3. ACETYLSALICYLIC ACID [Concomitant]
     Dosage: 75 MG, QD
     Route: 048
  4. FLIXOTIDE [Concomitant]
     Indication: CHRONIC OBSTRUCTIVE PULMONARY DISEASE
     Dosage: UNK
     Route: 055
  5. METFORMIN HCL [Concomitant]
     Dosage: 500 MG, BID
     Route: 048
  6. OXYBUTYNIN CHLORIDE [Concomitant]
     Indication: POLLAKIURIA
     Dosage: 2.5 MG, BID
     Route: 048
  7. QUETIAPINE FUMARATE [Concomitant]
     Indication: SCHIZOPHRENIA
     Dosage: 150 MG, BID
     Route: 048
  8. ALBUTEROL [Concomitant]
     Indication: CHRONIC OBSTRUCTIVE PULMONARY DISEASE
     Dosage: UNK
     Route: 055

REACTIONS (7)
  - BLOOD ALKALINE PHOSPHATASE INCREASED [None]
  - CARDIAC ENZYMES INCREASED [None]
  - CHRONIC OBSTRUCTIVE PULMONARY DISEASE [None]
  - DIABETES MELLITUS [None]
  - MALAISE [None]
  - PERICARDIAL EFFUSION [None]
  - RESPIRATORY DISORDER [None]
